FAERS Safety Report 4964661-0 (Version None)
Quarter: 2006Q1

REPORT INFORMATION
  Report Type: 
  Country: None (occurrence: None)
  Receive Date: 20060331
  Receipt Date: 20060315
  Transmission Date: 20060701
  Serious: No
  Sender: FDA-Public Use
  Company Number: US200603005603

PATIENT
  Age: 50 Year
  Sex: Female

DRUGS (1)
  1. CYMBALTA [Suspect]
     Dosage: 60 MG
     Dates: start: 20060101

REACTIONS (2)
  - HEPATIC ENZYME INCREASED [None]
  - PHARMACEUTICAL PRODUCT COMPLAINT [None]
